FAERS Safety Report 7205861-9 (Version None)
Quarter: 2010Q4

REPORT INFORMATION
  Report Type: 
  Country: None (occurrence: None)
  Receive Date: 20101231
  Receipt Date: 20101217
  Transmission Date: 20110411
  Serious: Yes (Hospitalization, Other)
  Sender: FDA-Public Use
  Company Number: SK-CELGENEUS-260-50794-10121949

PATIENT
  Age: 35 Year
  Sex: Male

DRUGS (1)
  1. VIDAZA [Suspect]
     Route: 065
     Dates: start: 20091201, end: 20101001

REACTIONS (2)
  - HEPATITIS B [None]
  - STAPHYLOCOCCAL BACTERAEMIA [None]
